FAERS Safety Report 9315304 (Version 1)
Quarter: 2013Q2

REPORT INFORMATION
  Report Type: Report from Study
  Country: US (occurrence: US)
  Receive Date: 20130529
  Receipt Date: 20130529
  Transmission Date: 20140414
  Serious: Yes (Hospitalization)
  Sender: FDA-Public Use
  Company Number: US-ASTRAZENECA-2013SE35188

PATIENT
  Age: 68 Year
  Sex: Female

DRUGS (16)
  1. TOPROL XL [Suspect]
     Route: 048
  2. LISINOPRIL [Suspect]
     Route: 048
  3. PRILOSEC OTC [Suspect]
     Route: 048
  4. ALENDRONATE SODIUM [Concomitant]
  5. VITAMIN D [Concomitant]
  6. BABY ASPIRIN [Concomitant]
  7. IC TROSPIUM CHLORIDE [Concomitant]
  8. SIMVASTATIN [Concomitant]
  9. PRAMIPEXOLE DI HCL [Concomitant]
  10. SPIRIVA [Concomitant]
     Route: 055
  11. PROAIR HFA [Concomitant]
     Dosage: 2 PUFFS, EVERY 4 HRS AS NEEDED
     Route: 055
  12. IC FERROUS SULFATE [Concomitant]
  13. LASIX [Concomitant]
  14. POTASSIUM [Concomitant]
  15. KLOR-CON [Concomitant]
  16. FUROSEMIDE [Concomitant]

REACTIONS (1)
  - Heart rate decreased [Unknown]
